FAERS Safety Report 16851570 (Version 1)
Quarter: 2019Q3

REPORT INFORMATION
  Report Type: Report from Study
  Country: US (occurrence: US)
  Receive Date: 20190925
  Receipt Date: 20190925
  Transmission Date: 20191005
  Serious: Yes (Hospitalization)
  Sender: FDA-Public Use
  Company Number: US-GILEAD-2019-0405775

PATIENT
  Age: 82 Year
  Sex: Female

DRUGS (9)
  1. UPTRAVI [Suspect]
     Active Substance: SELEXIPAG
     Dosage: 600 UG
     Route: 065
     Dates: start: 20190624
  2. OMEPRAZOLE [OMEPRAZOLE SODIUM] [Concomitant]
     Active Substance: OMEPRAZOLE SODIUM
  3. AMBRISENTAN [Suspect]
     Active Substance: AMBRISENTAN
     Indication: PULMONARY ARTERIAL HYPERTENSION
     Dosage: 5 MG, QD
     Route: 048
     Dates: start: 20190116
  4. UPTRAVI [Suspect]
     Active Substance: SELEXIPAG
     Indication: PRODUCT USED FOR UNKNOWN INDICATION
     Dosage: 1200 UG, BID
     Route: 065
  5. UPTRAVI [Suspect]
     Active Substance: SELEXIPAG
     Dosage: 400 UG, BID
     Route: 065
  6. IMODIUM [Suspect]
     Active Substance: LOPERAMIDE HYDROCHLORIDE
     Indication: PRODUCT USED FOR UNKNOWN INDICATION
     Route: 065
  7. UPTRAVI [Suspect]
     Active Substance: SELEXIPAG
     Dosage: 800 UG, BID
     Route: 065
     Dates: start: 20190624
  8. UPTRAVI [Suspect]
     Active Substance: SELEXIPAG
     Dosage: 200MCG
     Route: 065
     Dates: start: 20190522
  9. ADCIRCA [Concomitant]
     Active Substance: TADALAFIL

REACTIONS (32)
  - Catheterisation cardiac [Unknown]
  - Mobility decreased [Unknown]
  - Joint swelling [Recovering/Resolving]
  - Asthenia [Unknown]
  - Oedema peripheral [Unknown]
  - Dry skin [Unknown]
  - Visual impairment [Unknown]
  - Frequent bowel movements [Not Recovered/Not Resolved]
  - Diarrhoea [Not Recovered/Not Resolved]
  - Frequent bowel movements [Unknown]
  - Infrequent bowel movements [Unknown]
  - Pain [Unknown]
  - Dizziness [Not Recovered/Not Resolved]
  - Headache [Unknown]
  - Faeces soft [Not Recovered/Not Resolved]
  - Pruritus [Unknown]
  - Dyspnoea [Not Recovered/Not Resolved]
  - Gastrooesophageal reflux disease [Unknown]
  - Disturbance in attention [Not Recovered/Not Resolved]
  - Skin irritation [Unknown]
  - Nausea [Not Recovered/Not Resolved]
  - Gastroenteritis viral [Not Recovered/Not Resolved]
  - Neuropathy peripheral [Unknown]
  - Abdominal pain upper [Not Recovered/Not Resolved]
  - Fluid retention [Unknown]
  - Feeling abnormal [Unknown]
  - Retching [Recovered/Resolved]
  - Fungal infection [Unknown]
  - Gastric disorder [Unknown]
  - Urinary tract infection [Unknown]
  - Joint swelling [Unknown]
  - Fatigue [Not Recovered/Not Resolved]
